FAERS Safety Report 8050257-3 (Version None)
Quarter: 2012Q1

REPORT INFORMATION
  Report Type: 
  Country: None (occurrence: None)
  Receive Date: 20120117
  Receipt Date: 20120110
  Transmission Date: 20120608
  Serious: Yes (Other)
  Sender: FDA-Public Use
  Company Number: BR-PFIZER INC-2012008224

PATIENT
  Age: 64 Year
  Sex: Female
  Weight: 72 kg

DRUGS (4)
  1. METFORMIN [Concomitant]
     Indication: DIABETES MELLITUS
     Dosage: TWO TABLETS DAILY
  2. XALATAN [Suspect]
     Indication: OCULAR HYPERTENSION
     Dosage: 3 UG (ONE DROP IN EACH EYE)
     Route: 047
     Dates: start: 20120101
  3. IRBESARTAN + HYDROCHLOROTHIAZIDE [Concomitant]
     Indication: HYPERTENSION
     Dosage: UNK
  4. OMEPRAZOLE [Concomitant]
     Indication: GASTRITIS PROPHYLAXIS
     Dosage: ONE TABLET DAILY

REACTIONS (3)
  - ANAESTHESIA [None]
  - OCULAR HYPERAEMIA [None]
  - EYE PAIN [None]
